FAERS Safety Report 24753813 (Version 2)
Quarter: 2025Q2

REPORT INFORMATION
  Report Type: Report from Study
  Country: JP (occurrence: JP)
  Receive Date: 20241219
  Receipt Date: 20250512
  Transmission Date: 20250716
  Serious: No
  Sender: EISAI
  Company Number: JP-Eisai-202408116_LEQ_P_1

PATIENT
  Age: 75 Year
  Sex: Female
  Weight: 50 kg

DRUGS (3)
  1. LEQEMBI [Suspect]
     Active Substance: LECANEMAB-IRMB
     Indication: Dementia Alzheimer^s type
     Dates: start: 20240318, end: 20240611
  2. LEQEMBI [Suspect]
     Active Substance: LECANEMAB-IRMB
     Dates: start: 20240625, end: 20240917
  3. QUETIAPINE FUMARATE [Concomitant]
     Active Substance: QUETIAPINE FUMARATE
     Indication: Delusion

REACTIONS (1)
  - Amyloid related imaging abnormality-microhaemorrhages and haemosiderin deposits [Not Recovered/Not Resolved]

NARRATIVE: CASE EVENT DATE: 20240611
